FAERS Safety Report 10672055 (Version 1)
Quarter: 2014Q4

REPORT INFORMATION
  Report Type: Spontaneous
  Country: US (occurrence: None)
  Receive Date: 20141222
  Receipt Date: 20141222
  Transmission Date: 20150529
  Serious: Yes (Hospitalization)
  Sender: FDA-Public Use
  Company Number: None

PATIENT
  Sex: Female
  Weight: 79.1 kg

DRUGS (7)
  1. RIBAVIRIN. [Suspect]
     Active Substance: RIBAVIRIN
     Dosage: 1200, 2X DAILY, ORAL
     Route: 048
     Dates: start: 20141022, end: 20141107
  2. ZOLOFT ??? [Concomitant]
  3. SOFOSBUVIR 400 MG [Suspect]
     Active Substance: SOFOSBUVIR
     Dosage: 400, 1X DAILY, ORAL
     Route: 048
     Dates: start: 20141022, end: 20141107
  4. VITAMIN D3 [Concomitant]
     Active Substance: CHOLECALCIFEROL
  5. FLEXERIL [Concomitant]
     Active Substance: CYCLOBENZAPRINE HYDROCHLORIDE
  6. PROPRANOLOL [Concomitant]
     Active Substance: PROPRANOLOL\PROPRANOLOL HYDROCHLORIDE
  7. ZOFRAN [Concomitant]
     Active Substance: ONDANSETRON HYDROCHLORIDE

REACTIONS (2)
  - Psychotic disorder [None]
  - Insomnia [None]

NARRATIVE: CASE EVENT DATE: 20141107
